FAERS Safety Report 23642682 (Version 2)
Quarter: 2024Q2

REPORT INFORMATION
  Report Type: Spontaneous
  Country: IT (occurrence: IT)
  Receive Date: 20240318
  Receipt Date: 20240402
  Transmission Date: 20240715
  Serious: Yes (Other)
  Sender: FDA-Public Use
  Company Number: IT-TEVA-VS-3168711

PATIENT
  Age: 58 Year
  Sex: Female

DRUGS (5)
  1. CISPLATIN [Suspect]
     Active Substance: CISPLATIN
     Indication: Lung adenocarcinoma
     Route: 065
     Dates: start: 201908
  2. TRAMETINIB [Suspect]
     Active Substance: TRAMETINIB
     Indication: Lung adenocarcinoma
     Route: 048
     Dates: start: 20200429
  3. NINTEDANIB [Concomitant]
     Active Substance: NINTEDANIB
     Indication: Lung adenocarcinoma
     Route: 065
  4. DABRAFENIB [Suspect]
     Active Substance: DABRAFENIB
     Indication: Lung adenocarcinoma
     Route: 048
     Dates: start: 20200429
  5. PEMETREXED [Suspect]
     Active Substance: PEMETREXED
     Indication: Lung adenocarcinoma
     Route: 065
     Dates: start: 201908

REACTIONS (6)
  - Skin toxicity [Unknown]
  - Pyrexia [Unknown]
  - Abdominal pain upper [Unknown]
  - Drug ineffective [Unknown]
  - Nausea [Unknown]
  - Asthenia [Unknown]

NARRATIVE: CASE EVENT DATE: 20190101
